FAERS Safety Report 21172043 (Version 2)
Quarter: 2022Q3

REPORT INFORMATION
  Report Type: Spontaneous
  Country: US (occurrence: US)
  Receive Date: 20220804
  Receipt Date: 20220907
  Transmission Date: 20221027
  Serious: No
  Sender: FDA-Public Use
  Company Number: US-BRISTOL-MYERS SQUIBB COMPANY-2022-084957

PATIENT
  Age: 68 Year
  Sex: Female
  Weight: 79.37 kg

DRUGS (2)
  1. REVLIMID [Suspect]
     Active Substance: LENALIDOMIDE
     Indication: Plasma cell myeloma
     Dosage: FREQUENCY:  DAY 1-21, THEN 7 DAYS OFF. REPEAT
     Route: 048
     Dates: start: 20220706
  2. REVLIMID [Suspect]
     Active Substance: LENALIDOMIDE
     Dosage: DAILY X21 DAYS, EVERY 28 DAYS
     Route: 048
     Dates: start: 20220808

REACTIONS (4)
  - Influenza [Recovered/Resolved]
  - Peripheral swelling [Unknown]
  - Rash [Unknown]
  - Sinusitis [Recovered/Resolved]
